FAERS Safety Report 18943406 (Version 1)
Quarter: 2021Q1

REPORT INFORMATION
  Report Type: Report from Study
  Country: US (occurrence: US)
  Receive Date: 20210226
  Receipt Date: 20210226
  Transmission Date: 20210420
  Serious: No
  Sender: FDA-Public Use
  Company Number: US-ACADIA PHARMACEUTICALS INC.-ACA-2021-PIM-000488

PATIENT
  Sex: Male

DRUGS (7)
  1. DONEPEZIL. [Concomitant]
     Active Substance: DONEPEZIL
  2. LISINOPRIL. [Concomitant]
     Active Substance: LISINOPRIL
  3. NUPLAZID [Suspect]
     Active Substance: PIMAVANSERIN TARTRATE
     Indication: PARKINSON^S DISEASE
     Dosage: UNK
     Route: 048
     Dates: start: 20210203
  4. CARBIDOPA/LEVODOPA [Concomitant]
     Active Substance: CARBIDOPA\LEVODOPA
  5. SIMVASTATIN. [Concomitant]
     Active Substance: SIMVASTATIN
  6. DULOXETINE. [Concomitant]
     Active Substance: DULOXETINE
  7. MEMANTINE HCL [Concomitant]
     Active Substance: MEMANTINE

REACTIONS (1)
  - Therapeutic response unexpected [Unknown]
